FAERS Safety Report 10378126 (Version 1)
Quarter: 2014Q1

REPORT INFORMATION
  Report Type: Spontaneous
  Country: US (occurrence: None)
  Receive Date: 20140306
  Receipt Date: 20140306
  Transmission Date: 20141002
  Serious: Yes (Other)
  Sender: FDA-Public Use
  Company Number: 163-21880-13013698

PATIENT
  Age: 75 Year
  Sex: Male

DRUGS (9)
  1. REVLIMID (LENALIDOMIDE) (CAPSULES) [Suspect]
     Indication: PLASMA CELL MYELOMA
     Route: 048
     Dates: start: 20120815
  2. ALEVE (NAPROXEN SODIUM) [Concomitant]
  3. GABAPENTIN [Concomitant]
  4. GENTLELAX (MACROGOL 3350) [Concomitant]
  5. HYDROMORPHONE HCL (HYDROMORPHONE HYDROCHLORIDE) [Concomitant]
  6. MILK OF MAGNESIA (MAGNESIUM HYDROXIDE) [Concomitant]
  7. SENNA PLUS (COLOXYL WITH SENNA) [Concomitant]
  8. TOVIAZ (FESOTERODINE FUMARATE) [Concomitant]
  9. XARELTO (RIVAROXABAN) [Concomitant]

REACTIONS (1)
  - Thrombosis [None]
